FAERS Safety Report 5223290-4 (Version None)
Quarter: 2007Q1

REPORT INFORMATION
  Report Type: 
  Country: None (occurrence: None)
  Receive Date: 20070125
  Receipt Date: 20070111
  Transmission Date: 20070707
  Serious: Yes (Other)
  Sender: FDA-Public Use
  Company Number: VNL_0318_2006

PATIENT
  Age: 73 Year
  Sex: Male

DRUGS (5)
  1. APO-GO [Suspect]
     Indication: PARKINSON'S DISEASE
     Dosage: 30 MG/12HRS CON SC
     Route: 058
     Dates: start: 20061127, end: 20061128
  2. ROPINIROLE HCL [Concomitant]
  3. STALEVO 100 [Concomitant]
  4. DOMPERIDONE [Concomitant]
  5. ADCAL-D3 [Concomitant]

REACTIONS (8)
  - AGGRESSION [None]
  - AGITATION [None]
  - CHILLS [None]
  - CONFUSIONAL STATE [None]
  - FEELING HOT [None]
  - FLUSHING [None]
  - PSYCHOTIC DISORDER [None]
  - TREMOR [None]
